FAERS Safety Report 11177235 (Version 1)
Quarter: 2015Q2

REPORT INFORMATION
  Report Type: Spontaneous
  Country: US (occurrence: US)
  Receive Date: 20150610
  Receipt Date: 20150610
  Transmission Date: 20150821
  Serious: No
  Sender: FDA-Public Use
  Company Number: US-BAYER-2015-304673

PATIENT
  Age: 79 Year
  Sex: Female
  Weight: 48 kg

DRUGS (3)
  1. ALEVE [Suspect]
     Active Substance: NAPROXEN SODIUM
     Indication: ARTHRALGIA
     Dosage: 2 DF, BID
     Dates: start: 201412
  2. ALEVE [Suspect]
     Active Substance: NAPROXEN SODIUM
     Indication: ARTHRALGIA
     Dosage: 2 DF, BID
     Dates: start: 201412, end: 201412
  3. BAYER LOW DOSE [Concomitant]
     Active Substance: ASPIRIN
     Dosage: 2 DF, QD

REACTIONS (2)
  - Extra dose administered [None]
  - Off label use [None]

NARRATIVE: CASE EVENT DATE: 201412
